FAERS Safety Report 5854158-8 (Version None)
Quarter: 2008Q3

REPORT INFORMATION
  Report Type: 
  Country: None (occurrence: None)
  Receive Date: 20080822
  Receipt Date: 20080812
  Transmission Date: 20090109
  Serious: No
  Sender: FDA-Public Use
  Company Number: FR-ELI_LILLY_AND_COMPANY-FR200806001169

PATIENT
  Sex: Male

DRUGS (4)
  1. ZYPREXA [Suspect]
     Indication: PERSONALITY DISORDER
     Dosage: 10 MG, 3/D
     Route: 048
     Dates: end: 20080611
  2. ATARAX [Concomitant]
     Indication: PERSONALITY DISORDER
     Dosage: 100 MG, DAILY (1/D)
     Route: 048
  3. OXAZEPAM [Concomitant]
     Indication: PERSONALITY DISORDER
     Dosage: 200 MG, UNK
     Route: 048
  4. LEPTICUR [Concomitant]
     Indication: PERSONALITY DISORDER
     Route: 048

REACTIONS (7)
  - C-REACTIVE PROTEIN INCREASED [None]
  - GYNAECOMASTIA [None]
  - HYPERPROLACTINAEMIA [None]
  - MEAN CELL HAEMOGLOBIN DECREASED [None]
  - MEAN CELL VOLUME DECREASED [None]
  - OVERDOSE [None]
  - WHITE BLOOD CELL COUNT INCREASED [None]
